FAERS Safety Report 8180481-0 (Version None)
Quarter: 2012Q1

REPORT INFORMATION
  Report Type: 
  Country: None (occurrence: None)
  Receive Date: 20120302
  Receipt Date: 20120227
  Transmission Date: 20120608
  Serious: Yes (Other)
  Sender: FDA-Public Use
  Company Number: DE-ABBOTT-12P-062-0909289-00

PATIENT
  Age: 51 Year
  Sex: Female

DRUGS (2)
  1. METHOTREXATE [Concomitant]
     Indication: PSORIASIS
     Dates: end: 20120101
  2. HUMIRA [Suspect]
     Indication: PSORIASIS
     Dates: end: 20120101

REACTIONS (3)
  - VOCAL CORD CYST [None]
  - HYPERPLASIA [None]
  - TONGUE DISORDER [None]
